FAERS Safety Report 16149543 (Version 3)
Quarter: 2020Q3

REPORT INFORMATION
  Report Type: Report from Study
  Country: JP (occurrence: JP)
  Receive Date: 20190402
  Receipt Date: 20200709
  Transmission Date: 20201102
  Serious: Yes (Death, Other)
  Sender: FDA-Public Use
  Company Number: JP-ALLERGAN-1914575US

PATIENT
  Sex: Male

DRUGS (3)
  1. LINACLOTIDE ? BP [Suspect]
     Active Substance: LINACLOTIDE
     Indication: IRRITABLE BOWEL SYNDROME
     Dosage: 0.25 MG, QD
     Route: 048
     Dates: start: 20180510, end: 20180624
  2. LINACLOTIDE ? BP [Suspect]
     Active Substance: LINACLOTIDE
     Dosage: 0.5 MG, QD
     Route: 048
     Dates: start: 20180425, end: 20180510
  3. SENNOSIDE [Concomitant]
     Active Substance: SENNOSIDES
     Indication: PRODUCT USED FOR UNKNOWN INDICATION
     Dosage: UNK
     Route: 065
     Dates: end: 20180131

REACTIONS (1)
  - Pancreatic carcinoma [Fatal]

NARRATIVE: CASE EVENT DATE: 201710
